FAERS Safety Report 4695678-1 (Version None)
Quarter: 2005Q2

REPORT INFORMATION
  Report Type: 
  Country: None (occurrence: None)
  Receive Date: 20050616
  Receipt Date: 20050616
  Transmission Date: 20051028
  Serious: Yes (Hospitalization)
  Sender: FDA-Public Use
  Company Number: None

PATIENT
  Age: 53 Year
  Sex: Male
  Weight: 82 kg

DRUGS (6)
  1. 5-FU (400 MG/M2) EVERY OTHER WEEK [Suspect]
     Indication: COLON CANCER METASTATIC
     Dosage: 400/400 IV BOLUS
     Route: 040
     Dates: start: 20050601
  2. ERLOTINIB [Suspect]
     Indication: COLON CANCER METASTATIC
     Dosage: 150 MG QD ORAL
     Route: 048
     Dates: start: 20050601
  3. LEUCOVORIN (400 MG/M2) EVERY OTHER WEEK [Suspect]
     Indication: COLON CANCER METASTATIC
     Dosage: 400/400 IV BOLUS
     Route: 040
     Dates: start: 20050601
  4. 5-FU (1200 MG/M2 OVER 46 HOUR CONTINUOUS INFUSION) EVERY OTHER WEEK [Suspect]
     Indication: COLON CANCER METASTATIC
     Dosage: 1200 CI IV
     Route: 042
     Dates: start: 20050601
  5. OXALIPLATIN (85 MG/M2) EVERY OTHER WEEK [Suspect]
     Indication: COLON CANCER METASTATIC
     Dosage: 85 IV
     Route: 042
     Dates: start: 20050601
  6. BEVACIZUMAB (5 MG/KG) [Suspect]
     Indication: COLON CANCER METASTATIC
     Dosage: 5 MG/KG IV
     Route: 042
     Dates: start: 20050601

REACTIONS (7)
  - ABDOMINAL PAIN [None]
  - ASTHENIA [None]
  - CONSTIPATION [None]
  - NAUSEA [None]
  - REFUSAL OF TREATMENT BY PATIENT [None]
  - SMALL INTESTINAL OBSTRUCTION [None]
  - VOMITING [None]
